FAERS Safety Report 8876823 (Version 2)
Quarter: 2012Q4

REPORT INFORMATION
  Report Type: 
  Country: US (occurrence: US)
  Receive Date: 20121029
  Receipt Date: 20121122
  Transmission Date: 20130627
  Serious: Yes (Hospitalization, Other)
  Sender: FDA-Public Use
  Company Number: US-B.I. PHARMACEUTICALS,INC./RIDGEFIELD-2012-BP-26355BP

PATIENT
  Sex: Male
  Weight: 70.3 kg

DRUGS (7)
  1. PRADAXA [Suspect]
     Indication: ATRIAL FIBRILLATION
     Dosage: 300 mg
     Route: 048
     Dates: start: 201105
  2. COREG [Concomitant]
     Indication: ARTERIOSCLEROSIS
     Dosage: 6.25 NR
  3. ASPIRIN [Concomitant]
     Indication: ARTERIOSCLEROSIS
     Dosage: 81 mg
  4. DIGOXIN [Concomitant]
     Indication: ARTERIOSCLEROSIS
     Dosage: 0.5 NR
  5. IMDUR [Concomitant]
     Indication: ARTERIOSCLEROSIS
     Dosage: 30 NR
  6. FUROSEMIDE [Concomitant]
     Indication: ARTERIOSCLEROSIS
     Dosage: 20 NR
  7. CRESTOR [Concomitant]
     Dosage: 10 NR

REACTIONS (1)
  - Epistaxis [Recovered/Resolved]
